FAERS Safety Report 7744809-5 (Version None)
Quarter: 2011Q3

REPORT INFORMATION
  Report Type: 
  Country: None (occurrence: None)
  Receive Date: 20110912
  Receipt Date: 20110912
  Transmission Date: 20111222
  Serious: No
  Sender: FDA-Public Use
  Company Number: None

PATIENT
  Age: 47 Year
  Sex: Female
  Weight: 90.718 kg

DRUGS (2)
  1. CELEXA [Suspect]
     Indication: ANXIETY
     Dosage: 30MG
     Route: 048
  2. CELEXA [Suspect]
     Indication: DEPRESSION
     Dosage: 30MG
     Route: 048

REACTIONS (1)
  - ATRIAL FIBRILLATION [None]
